FAERS Safety Report 8928764 (Version 2)
Quarter: 2013Q2

REPORT INFORMATION
  Report Type: Spontaneous
  Country: JP (occurrence: JP)
  Receive Date: 20121128
  Receipt Date: 20130426
  Transmission Date: 20140414
  Serious: Yes (Hospitalization, Other)
  Sender: FDA-Public Use
  Company Number: JP-SP-2012-11233

PATIENT
  Age: 76 Year
  Sex: Male
  Weight: 78 kg

DRUGS (1)
  1. IMMUCYST [Suspect]
     Indication: BLADDER CANCER
     Route: 043
     Dates: start: 201012

REACTIONS (7)
  - Sepsis [Recovering/Resolving]
  - Renal failure acute [Recovered/Resolved]
  - Enterococcal infection [Recovering/Resolving]
  - Pyrexia [Unknown]
  - Anuria [Recovered/Resolved]
  - Vesicoureteric reflux [Unknown]
  - Chills [Recovered/Resolved]
